FAERS Safety Report 14033041 (Version 1)
Quarter: 2017Q4

REPORT INFORMATION
  Report Type: Report from Study
  Country: CA (occurrence: CA)
  Receive Date: 20171003
  Receipt Date: 20171003
  Transmission Date: 20180321
  Serious: Yes (Other)
  Sender: FDA-Public Use
  Company Number: CA-JNJFOC-20170929221

PATIENT
  Age: 52 Year
  Sex: Female
  Weight: 86 kg

DRUGS (2)
  1. VITAMIN B12 [Suspect]
     Active Substance: CYANOCOBALAMIN
     Indication: PRODUCT USED FOR UNKNOWN INDICATION
     Route: 058
  2. STELARA [Suspect]
     Active Substance: USTEKINUMAB
     Indication: PSORIASIS
     Dosage: STRENGTH = 45 MG
     Route: 058
     Dates: start: 20160205, end: 20170920

REACTIONS (3)
  - Staphylococcal infection [Recovering/Resolving]
  - Incorrect dose administered [Unknown]
  - Off label use [Unknown]

NARRATIVE: CASE EVENT DATE: 20160205
